FAERS Safety Report 13613907 (Version 2)
Quarter: 2018Q1

REPORT INFORMATION
  Report Type: Spontaneous
  Country: US (occurrence: US)
  Receive Date: 20170606
  Receipt Date: 20180102
  Transmission Date: 20180508
  Serious: No
  Sender: FDA-Public Use
  Company Number: US-TEVA-742475ACC

PATIENT
  Age: 85 Year
  Sex: Female

DRUGS (8)
  1. ASPIRIN. [Concomitant]
     Active Substance: ASPIRIN
  2. METFORMIN [Concomitant]
     Active Substance: METFORMIN HYDROCHLORIDE
  3. ATENOLOL. [Concomitant]
     Active Substance: ATENOLOL
  4. MINOXIDIL. [Suspect]
     Active Substance: MINOXIDIL
     Dates: start: 2015, end: 2017
  5. ENALAPRIL [Concomitant]
     Active Substance: ENALAPRIL
  6. ATORVASTATIN [Concomitant]
     Active Substance: ATORVASTATIN
  7. FLUOXETINE [Concomitant]
     Active Substance: FLUOXETINE HYDROCHLORIDE
  8. NIFEDICAL XL [Concomitant]
     Active Substance: NIFEDIPINE

REACTIONS (4)
  - Skin irritation [Not Recovered/Not Resolved]
  - Pain [Unknown]
  - Alopecia [Unknown]
  - Pruritus [Not Recovered/Not Resolved]
